FAERS Safety Report 9224259 (Version 1)
Quarter: 2013Q1

REPORT INFORMATION
  Report Type: Spontaneous
  Country: US (occurrence: None)
  Receive Date: 20120907
  Receipt Date: 20120907
  Transmission Date: 20140127
  Serious: Yes (Other)
  Sender: FDA-Public Use
  Company Number: TH-2012-00383

PATIENT
  Age: 64 Year
  Sex: Male
  Weight: 73 kg

DRUGS (2)
  1. EGRIFTA [Suspect]
     Indication: LIPODYSTROPHY ACQUIRED
     Dates: start: 2011
  2. HIV MEDICATIONS [Concomitant]

REACTIONS (5)
  - Prostate infection [None]
  - Bowel movement irregularity [None]
  - Abdominal pain upper [None]
  - Pain [None]
  - Muscle spasms [None]
